FAERS Safety Report 7986377-9 (Version None)
Quarter: 2011Q4

REPORT INFORMATION
  Report Type: 
  Country: None (occurrence: None)
  Receive Date: 20111216
  Receipt Date: 20110328
  Transmission Date: 20120403
  Serious: No
  Sender: FDA-Public Use
  Company Number: US-GLAXOSMITHKLINE-A0920316A

PATIENT
  Age: 55 Year
  Sex: Female

DRUGS (3)
  1. COREG CR [Suspect]
     Indication: HYPERTENSION
     Dosage: 20MG PER DAY
     Route: 048
     Dates: start: 20081101
  2. ACIPHEX [Concomitant]
  3. LISINOPRIL [Concomitant]

REACTIONS (5)
  - DRUG INEFFECTIVE [None]
  - DIZZINESS [None]
  - PALPITATIONS [None]
  - CHEST PAIN [None]
  - BLOOD PRESSURE INCREASED [None]
